FAERS Safety Report 7817109-2 (Version None)
Quarter: 2011Q4

REPORT INFORMATION
  Report Type: 
  Country: None (occurrence: None)
  Receive Date: 20111017
  Receipt Date: 20111004
  Transmission Date: 20120403
  Serious: Yes (Hospitalization)
  Sender: FDA-Public Use
  Company Number: PHHY2011JP88346

PATIENT
  Sex: Male

DRUGS (1)
  1. TEGRETOL [Suspect]
     Indication: BIPOLAR I DISORDER
     Dosage: UNK UKN, UNK
     Route: 048
     Dates: start: 19830101

REACTIONS (4)
  - GAIT DISTURBANCE [None]
  - DYSPNOEA [None]
  - ABASIA [None]
  - PULMONARY HYPERTENSION [None]
